FAERS Safety Report 6241291-4 (Version None)
Quarter: 2009Q2

REPORT INFORMATION
  Report Type: 
  Country: None (occurrence: None)
  Receive Date: 20090623
  Receipt Date: 20090617
  Transmission Date: 20091009
  Serious: Yes (Other)
  Sender: FDA-Public Use
  Company Number: AT-BRISTOL-MYERS SQUIBB COMPANY-14668305

PATIENT
  Age: 27 Year
  Sex: Female

DRUGS (10)
  1. CYCLOPHOSPHAMIDE [Suspect]
     Indication: HODGKIN'S DISEASE
  2. TAXOL [Suspect]
     Indication: HODGKIN'S DISEASE
  3. BLEOMYCIN SULFATE [Suspect]
     Indication: HODGKIN'S DISEASE
  4. DOXORUBICIN HCL [Suspect]
     Indication: HODGKIN'S DISEASE
  5. VINCRISTINE [Suspect]
     Indication: HODGKIN'S DISEASE
  6. PROCARBAZINE [Suspect]
     Indication: HODGKIN'S DISEASE
  7. PREDNISOLONE [Suspect]
     Indication: HODGKIN'S DISEASE
  8. VINBLASTINE SULFATE [Suspect]
     Indication: HODGKIN'S DISEASE
  9. DACARBAZINE [Suspect]
     Indication: HODGKIN'S DISEASE
  10. EPIRUBICIN [Suspect]
     Indication: HODGKIN'S DISEASE

REACTIONS (1)
  - BREAST CANCER [None]
